FAERS Safety Report 24211319 (Version 1)
Quarter: 2024Q3

REPORT INFORMATION
  Report Type: Spontaneous
  Country: US (occurrence: US)
  Receive Date: 20240814
  Receipt Date: 20240814
  Transmission Date: 20241017
  Serious: Yes (Death)
  Sender: PFIZER
  Company Number: US-PFIZER INC-202400235838

PATIENT
  Age: 38 Year
  Sex: Female

DRUGS (4)
  1. BRAFTOVI [Suspect]
     Active Substance: ENCORAFENIB
     Indication: Skin cancer
     Dosage: 75MG TAKE 6 CAPSULES BY MOUTH ONCE DAILY, WITH OR WITHOUT FOOD. (TOTAL DOSE: 450 MG)
     Route: 048
  2. MEKTOVI [Suspect]
     Active Substance: BINIMETINIB
     Indication: Skin cancer
     Dosage: 15MG TAKE 3 TABLETS (45 MG PER DOSE) BY MOUTH TWICE DAILY, WITH OR WITHOUT FOOD.
     Route: 048
  3. ELIQUIS [Concomitant]
     Active Substance: APIXABAN
     Dosage: UNK
  4. TYLENOL [Concomitant]
     Active Substance: ACETAMINOPHEN
     Dosage: UNK

REACTIONS (1)
  - Neoplasm progression [Fatal]
